FAERS Safety Report 5287716-2 (Version None)
Quarter: 2007Q2

REPORT INFORMATION
  Report Type: 
  Country: None (occurrence: None)
  Receive Date: 20070405
  Receipt Date: 20070321
  Transmission Date: 20071010
  Serious: Yes (Death, Life-Threatening, Hospitalization, Other)
  Sender: FDA-Public Use
  Company Number: NSADSS2001004019

PATIENT
  Age: 57 Year
  Sex: Female

DRUGS (11)
  1. REMICADE [Suspect]
     Route: 041
  2. REMICADE [Suspect]
     Route: 041
  3. REMICADE [Suspect]
     Indication: RHEUMATOID ARTHRITIS
     Route: 041
  4. ISONIAZID [Suspect]
     Indication: TUBERCULOSIS
  5. RIFAMPICIN [Suspect]
     Indication: TUBERCULOSIS
  6. METHOTREXATE [Concomitant]
     Indication: RHEUMATOID ARTHRITIS
     Route: 065
     Dates: start: 19950101
  7. DEFLAZACORT [Concomitant]
     Indication: RHEUMATOID ARTHRITIS
  8. INDOMETHACIN [Concomitant]
     Indication: RHEUMATOID ARTHRITIS
  9. CORTICOSTEROID [Concomitant]
  10. THYROID HORMONE [Concomitant]
  11. CALCIUM/VITAMIN D [Concomitant]

REACTIONS (7)
  - BACK PAIN [None]
  - DISSEMINATED TUBERCULOSIS [None]
  - HEPATIC FAILURE [None]
  - HEPATITIS [None]
  - JAUNDICE [None]
  - PYOMYOSITIS [None]
  - PYREXIA [None]
